FAERS Safety Report 5511189-5 (Version None)
Quarter: 2007Q4

REPORT INFORMATION
  Report Type: 
  Country: None (occurrence: None)
  Receive Date: 20071109
  Receipt Date: 20071029
  Transmission Date: 20080405
  Serious: Yes (Hospitalization, Other)
  Sender: FDA-Public Use
  Company Number: US-ELI_LILLY_AND_COMPANY-US200709006373

PATIENT
  Sex: Male

DRUGS (4)
  1. GEMZAR [Suspect]
     Indication: BILIARY CANCER METASTATIC
     Dates: start: 20060101
  2. GEMZAR [Suspect]
     Dosage: 1000MG/M2, OTHER
     Dates: start: 20070814
  3. TARCEVA [Concomitant]
     Indication: BILE DUCT CANCER
     Dates: start: 20060101
  4. OXALIPLATIN [Concomitant]
     Indication: BILIARY CANCER METASTATIC
     Dates: start: 20070814

REACTIONS (3)
  - CRYPTOGENIC ORGANISING PNEUMONIA [None]
  - MALIGNANT NEOPLASM PROGRESSION [None]
  - PNEUMOTHORAX [None]
